FAERS Safety Report 6971371-7 (Version None)
Quarter: 2010Q3

REPORT INFORMATION
  Report Type: 
  Country: None (occurrence: None)
  Receive Date: 20100908
  Receipt Date: 20100831
  Transmission Date: 20110219
  Serious: Yes (Death)
  Sender: FDA-Public Use
  Company Number: US-PURDUE-USA-2010-0046312

PATIENT
  Sex: Male

DRUGS (2)
  1. OXYCONTIN [Suspect]
     Indication: SPINAL FUSION ACQUIRED
  2. OXYCONTIN [Suspect]
     Indication: JOINT ANKYLOSIS

REACTIONS (1)
  - PNEUMONIA [None]
